FAERS Safety Report 8162441-9 (Version None)
Quarter: 2012Q1

REPORT INFORMATION
  Report Type: 
  Country: None (occurrence: None)
  Receive Date: 20120224
  Receipt Date: 20120210
  Transmission Date: 20120608
  Serious: Yes (Hospitalization)
  Sender: FDA-Public Use
  Company Number: AT-CELGENEUS-008-C5013-11072251

PATIENT
  Sex: Male
  Weight: 56.5 kg

DRUGS (11)
  1. PREDNISOLONE [Concomitant]
     Indication: HAEMOLYSIS
     Dosage: 5 MILLIGRAM
     Route: 048
     Dates: start: 20110607
  2. LENALIDOMIDE [Suspect]
     Dosage: 2.5 MILLIGRAM
     Route: 048
     Dates: start: 20110523
  3. LENALIDOMIDE [Suspect]
     Dosage: 5 MILLIGRAM
     Route: 048
     Dates: start: 20110622, end: 20110719
  4. ESOMEPRAZOLE SODIUM [Concomitant]
     Indication: GASTRITIS
     Dosage: 20 MILLIGRAM
     Route: 048
  5. FERROUS CARBONATE [Concomitant]
     Route: 065
     Dates: start: 20110823
  6. JELONET DRESSING [Concomitant]
     Indication: WOUND
     Route: 065
  7. ASPIRIN [Concomitant]
     Indication: PROPHYLAXIS
     Dosage: 150 MILLIGRAM
     Route: 048
     Dates: start: 20110525, end: 20110721
  8. SOTALOL HCL [Concomitant]
     Indication: ATRIAL FIBRILLATION
     Dosage: 40 MILLIGRAM
     Route: 048
     Dates: start: 20110601, end: 20110720
  9. COLOXYL SENNA [Concomitant]
     Route: 065
     Dates: start: 20110721
  10. FOLIC ACID [Concomitant]
     Indication: HAEMOLYSIS
     Dosage: 5 MILLIGRAM
     Route: 048
     Dates: start: 20110406
  11. PANTOPRAZOLE [Concomitant]
     Indication: GASTRITIS
     Dosage: 40 MILLIGRAM
     Route: 048

REACTIONS (2)
  - ANAEMIA [None]
  - GENERAL PHYSICAL HEALTH DETERIORATION [None]
